FAERS Safety Report 9999027 (Version 1)
Quarter: 2014Q1

REPORT INFORMATION
  Report Type: Spontaneous
  Country: GB (occurrence: GB)
  Receive Date: 20140312
  Receipt Date: 20140312
  Transmission Date: 20141002
  Serious: Yes (Death, Hospitalization, Other)
  Sender: FDA-Public Use
  Company Number: GB-UCBSA-114062

PATIENT
  Age: 74 Year
  Sex: Male

DRUGS (5)
  1. CERTOLIZUMAB PEGOL [Suspect]
     Indication: RHEUMATOID ARTHRITIS
     Route: 058
     Dates: start: 20120518, end: 20140128
  2. PREDNISOLONE [Concomitant]
  3. ALENDRONATE [Concomitant]
     Dosage: UNKNOWN DOSE
  4. HYDROXYCHLOROQUINE [Concomitant]
  5. METHOTREXATE [Concomitant]

REACTIONS (1)
  - Hepatic cancer [Fatal]
